FAERS Safety Report 21985809 (Version 1)
Quarter: 2023Q1

REPORT INFORMATION
  Report Type: Spontaneous
  Country: US (occurrence: None)
  Receive Date: 20230211
  Receipt Date: 20230211
  Transmission Date: 20230418
  Serious: Yes (Disabling)
  Sender: FDA-Public Use
  Company Number: None

PATIENT
  Age: 32 Year
  Sex: Female
  Weight: 73.35 kg

DRUGS (1)
  1. ELURYNG [Suspect]
     Active Substance: ETHINYL ESTRADIOL\ETONOGESTREL
     Indication: Contraception
     Route: 067
     Dates: start: 20221023, end: 20230205

REACTIONS (5)
  - Migraine [None]
  - Intermenstrual bleeding [None]
  - Weight increased [None]
  - Abdominal distension [None]
  - Anxiety [None]
